FAERS Safety Report 9041166 (Version 1)
Quarter: 2013Q1

REPORT INFORMATION
  Report Type: Spontaneous
  Country: US (occurrence: None)
  Receive Date: 20130124
  Receipt Date: 20130124
  Transmission Date: 20140127
  Serious: Yes (Life-Threatening, Hospitalization, Disabling, Other)
  Sender: FDA-Public Use
  Company Number: None

PATIENT
  Age: 71 Year
  Sex: Male
  Weight: 86.18 kg

DRUGS (1)
  1. AVASTIN [Suspect]
     Indication: MACULAR DEGENERATION
     Dosage: 1.25MG/0.05ML  5 INJ.  OS - (L) EYE
     Dates: start: 20120619

REACTIONS (1)
  - Myocardial infarction [None]
